FAERS Safety Report 18048957 (Version 4)
Quarter: 2021Q1

REPORT INFORMATION
  Report Type: Spontaneous
  Country: US (occurrence: US)
  Receive Date: 20200721
  Receipt Date: 20210206
  Transmission Date: 20210419
  Serious: No
  Sender: FDA-Public Use
  Company Number: US-JNJFOC-20200728106

PATIENT
  Sex: Female
  Weight: 79.45 kg

DRUGS (1)
  1. IMODIUM MULTI?SYMPTOM RELIEF [Suspect]
     Active Substance: DIMETHICONE\LOPERAMIDE HYDROCHLORIDE
     Indication: DIARRHOEA
     Route: 048
     Dates: start: 20170101, end: 20200714

REACTIONS (2)
  - Product blister packaging issue [Unknown]
  - Incorrect dose administered [Unknown]
